FAERS Safety Report 17791948 (Version 2)
Quarter: 2020Q2

REPORT INFORMATION
  Report Type: Spontaneous
  Country: US (occurrence: US)
  Receive Date: 20200515
  Receipt Date: 20200518
  Transmission Date: 20200714
  Serious: No
  Sender: FDA-Public Use
  Company Number: US-PFIZER INC-2020193974

PATIENT
  Age: 62 Year
  Sex: Female
  Weight: 48.99 kg

DRUGS (1)
  1. LINEZOLID. [Suspect]
     Active Substance: LINEZOLID
     Indication: LOWER RESPIRATORY TRACT INFECTION
     Dosage: 600 MG, 2X/DAY (2 TIMES A DAY, EVERY 12 HOURS) FOR 7 DAYS
     Route: 048
     Dates: start: 202005, end: 20200514

REACTIONS (2)
  - Dysphagia [Unknown]
  - Hypoaesthesia oral [Not Recovered/Not Resolved]

NARRATIVE: CASE EVENT DATE: 202005
